FAERS Safety Report 17488713 (Version 1)
Quarter: 2020Q1

REPORT INFORMATION
  Report Type: Spontaneous
  Country: US (occurrence: US)
  Receive Date: 20200220
  Receipt Date: 20200220
  Transmission Date: 20200409
  Serious: No
  Sender: FDA-Public Use
  Company Number: None

PATIENT
  Sex: Female

DRUGS (1)
  1. EVEROLIMUS 5MG PAR [Suspect]
     Active Substance: EVEROLIMUS
     Indication: LENNOX-GASTAUT SYNDROME
     Route: 048
     Dates: start: 202001, end: 202002

REACTIONS (1)
  - Generalised tonic-clonic seizure [None]
